FAERS Safety Report 15342424 (Version 3)
Quarter: 2021Q4

REPORT INFORMATION
  Report Type: Spontaneous
  Country: PL (occurrence: PL)
  Receive Date: 20180902
  Receipt Date: 20211101
  Transmission Date: 20220303
  Serious: Yes (Hospitalization, Other)
  Sender: FDA-Public Use
  Company Number: PHHY2018PL086569

PATIENT
  Age: 63 Year
  Sex: Male
  Weight: 74 kg

DRUGS (3)
  1. TACROLIMUS [Suspect]
     Active Substance: TACROLIMUS
     Indication: Renal transplant
     Dosage: 1.5 MG,QD
     Route: 048
     Dates: start: 20170810, end: 20170927
  2. PROGRAF [Suspect]
     Active Substance: TACROLIMUS
     Indication: Product used for unknown indication
     Dosage: UNK
     Route: 065
     Dates: start: 20180111
  3. PREDNISONE [Concomitant]
     Active Substance: PREDNISONE
     Indication: Immunosuppressant drug therapy
     Dosage: 5 (UNIT NOT PROVIDED), ONCE DAILY
     Route: 065
     Dates: start: 20160919

REACTIONS (7)
  - Colon cancer [Recovered/Resolved]
  - Urinary tract infection bacterial [Recovered/Resolved]
  - Urinary tract infection bacterial [Recovered/Resolved]
  - Pneumonia [Recovered/Resolved]
  - Postoperative wound infection [Recovered/Resolved]
  - Urinary tract infection [Recovered/Resolved]
  - Large intestine polyp [Unknown]

NARRATIVE: CASE EVENT DATE: 20180122
